FAERS Safety Report 25573905 (Version 2)
Quarter: 2025Q3

REPORT INFORMATION
  Report Type: Report from Study
  Country: US (occurrence: US)
  Receive Date: 20250717
  Receipt Date: 20250903
  Transmission Date: 20251020
  Serious: No
  Sender: SANDOZ
  Company Number: US-SANDOZ-SDZ2025US043035

PATIENT
  Age: 16 Year
  Sex: Male

DRUGS (6)
  1. OMNITROPE [Suspect]
     Active Substance: SOMATROPIN
     Dosage: 0.48 ML, QD (STRENGTH:5 MG/ML)
     Route: 058
  2. OMNITROPE [Suspect]
     Active Substance: SOMATROPIN
     Dosage: 0.48 ML, QD (STRENGTH:5 MG/ML)
     Route: 058
  3. OMNITROPE [Suspect]
     Active Substance: SOMATROPIN
     Indication: Short stature
     Dosage: 0.48 ML, QD (STRENGTH 5.8MG VIAL)
     Route: 058
     Dates: start: 20250611
  4. OMNITROPE [Suspect]
     Active Substance: SOMATROPIN
     Indication: Short stature
     Dosage: 0.48 ML, QD (STRENGTH 5.8MG VIAL)
     Route: 058
     Dates: start: 20250611
  5. OMNITROPE [Suspect]
     Active Substance: SOMATROPIN
     Dosage: 2.5 MG, QD
     Route: 058
     Dates: start: 20250707, end: 20250710
  6. OMNITROPE [Suspect]
     Active Substance: SOMATROPIN
     Dosage: 2.5 MG, QD
     Route: 058
     Dates: start: 20250707, end: 20250710

REACTIONS (5)
  - Circumstance or information capable of leading to medication error [Unknown]
  - Incorrect dose administered by device [Unknown]
  - Liquid product physical issue [Unknown]
  - Device leakage [Unknown]
  - Device use confusion [Unknown]

NARRATIVE: CASE EVENT DATE: 20250611
